FAERS Safety Report 8563286-8 (Version None)
Quarter: 2012Q3

REPORT INFORMATION
  Report Type: 
  Country: None (occurrence: None)
  Receive Date: 20120802
  Receipt Date: 20120727
  Transmission Date: 20120928
  Serious: No
  Sender: FDA-Public Use
  Company Number: US-AMGEN-USASP2012047169

PATIENT
  Age: 63 Year
  Sex: Female

DRUGS (2)
  1. TREXALL [Concomitant]
     Dosage: 3 TABS/QWK
     Dates: start: 20120701
  2. ENBREL [Suspect]
     Indication: PSORIATIC ARTHROPATHY
     Dates: start: 20110628

REACTIONS (5)
  - NECK PAIN [None]
  - INJECTION SITE HAEMATOMA [None]
  - PAIN [None]
  - MUSCULOSKELETAL PAIN [None]
  - INSOMNIA [None]
